FAERS Safety Report 6123017-8 (Version None)
Quarter: 2009Q1

REPORT INFORMATION
  Report Type: 
  Country: None (occurrence: None)
  Receive Date: 20090318
  Receipt Date: 20090304
  Transmission Date: 20090719
  Serious: Yes (Other)
  Sender: FDA-Public Use
  Company Number: ES-MERCK-0903ESP00011

PATIENT
  Age: 46 Year
  Sex: Female

DRUGS (9)
  1. CANCIDAS [Suspect]
     Indication: CANDIDA SEPSIS
     Route: 042
     Dates: start: 20090115, end: 20090213
  2. CANCIDAS [Suspect]
     Route: 042
     Dates: start: 20090225
  3. CANCIDAS [Suspect]
     Indication: ENDOCARDITIS
     Route: 042
     Dates: start: 20090115, end: 20090213
  4. CANCIDAS [Suspect]
     Route: 042
     Dates: start: 20090225
  5. PRIMAXIN [Concomitant]
     Indication: SEPSIS
     Route: 051
     Dates: start: 20090115, end: 20090122
  6. LINEZOLID [Concomitant]
     Route: 065
     Dates: start: 20090115, end: 20090122
  7. VORICONAZOLE [Concomitant]
     Indication: ENDOCARDITIS CANDIDA
     Route: 065
     Dates: start: 20090225
  8. CIPROFLOXACIN [Concomitant]
     Route: 065
     Dates: start: 20090101
  9. TAZOCEL [Concomitant]
     Route: 065
     Dates: start: 20090101

REACTIONS (16)
  - ANAEMIA [None]
  - ANXIETY [None]
  - CHOLECYSTITIS ACUTE [None]
  - CHORIORETINITIS [None]
  - DEPRESSION [None]
  - DIARRHOEA [None]
  - HYPERNATRAEMIA [None]
  - HYPERTRIGLYCERIDAEMIA [None]
  - HYPOPHOSPHATAEMIA [None]
  - MALNUTRITION [None]
  - MYOPATHY [None]
  - OVERDOSE [None]
  - PARESIS [None]
  - PHLEBITIS [None]
  - PNEUMONIA [None]
  - URINARY TRACT INFECTION [None]
